FAERS Safety Report 8531076-8 (Version None)
Quarter: 2012Q3

REPORT INFORMATION
  Report Type: 
  Country: None (occurrence: None)
  Receive Date: 20120723
  Receipt Date: 20120713
  Transmission Date: 20120928
  Serious: Yes (Disabling)
  Sender: FDA-Public Use
  Company Number: DE-ASTRAZENECA-2012SE48635

PATIENT
  Age: 44 Year
  Sex: Female

DRUGS (4)
  1. PAIN KILLERS [Concomitant]
  2. TAMOXIFEN CITRATE [Suspect]
     Indication: BREAST CANCER
     Route: 048
     Dates: start: 20090601
  3. ZOLADEX [Suspect]
     Indication: BREAST CANCER
     Route: 058
     Dates: start: 20090601, end: 20100501
  4. LEVOTHYROXINE SODIUM [Concomitant]

REACTIONS (4)
  - BONE PAIN [None]
  - GAIT DISTURBANCE [None]
  - VISUAL ACUITY REDUCED [None]
  - ARTHRALGIA [None]
